FAERS Safety Report 19396583 (Version 1)
Quarter: 2021Q2

REPORT INFORMATION
  Report Type: Spontaneous
  Country: US (occurrence: US)
  Receive Date: 20210609
  Receipt Date: 20210609
  Transmission Date: 20210717
  Serious: Yes (Hospitalization)
  Sender: FDA-Public Use
  Company Number: US-MYLANLABS-2021M1032224

PATIENT
  Age: 5 Month
  Sex: Male

DRUGS (6)
  1. INTRALIPID                         /01648802/ [Suspect]
     Active Substance: SOYBEAN OIL
     Indication: ARRHYTHMIA
  2. LIDOCAINE. [Suspect]
     Active Substance: LIDOCAINE
     Indication: ARRHYTHMIA
  3. SODIUM CHLORIDE. [Suspect]
     Active Substance: SODIUM CHLORIDE
     Indication: ARRHYTHMIA
  4. INTRALIPID                         /01648802/ [Suspect]
     Active Substance: SOYBEAN OIL
     Indication: OVERDOSE
     Dosage: 1.5CC/KG
     Route: 065
  5. LIDOCAINE. [Suspect]
     Active Substance: LIDOCAINE
     Indication: OVERDOSE
     Dosage: 1 MILLIGRAM/KILOGRAM DOSAGE: 1 MG/KG X 2
     Route: 065
  6. SODIUM CHLORIDE. [Suspect]
     Active Substance: SODIUM CHLORIDE
     Indication: OVERDOSE
     Dosage: DOSE: 150CC BOLUS DOSE
     Route: 065

REACTIONS (1)
  - Therapy non-responder [Unknown]
